FAERS Safety Report 21249200 (Version 3)
Quarter: 2022Q3

REPORT INFORMATION
  Report Type: Spontaneous
  Country: US (occurrence: US)
  Receive Date: 20220824
  Receipt Date: 20220912
  Transmission Date: 20221027
  Serious: Yes (Hospitalization, Other)
  Sender: FDA-Public Use
  Company Number: US-ORGANON-O2208USA001689

PATIENT
  Age: 29 Year
  Sex: Female

DRUGS (4)
  1. NEXPLANON [Suspect]
     Active Substance: ETONOGESTREL
     Indication: Contraception
     Dosage: 1 IMPLANT
     Route: 059
  2. NEXPLANON [Suspect]
     Active Substance: ETONOGESTREL
     Dosage: 1 IMPLANT
     Route: 059
  3. NEXPLANON [Suspect]
     Active Substance: ETONOGESTREL
     Dosage: 1 IMPLANT
     Route: 059
     Dates: start: 2019, end: 20220808
  4. NEXPLANON [Suspect]
     Active Substance: ETONOGESTREL
     Indication: Contraception
     Dosage: 1 DOSAGE FORM
     Dates: start: 20220808, end: 20220815

REACTIONS (9)
  - Staphylococcal infection [Not Recovered/Not Resolved]
  - Device expulsion [Recovered/Resolved]
  - Device expulsion [Recovered/Resolved]
  - Impaired healing [Unknown]
  - Implant site discharge [Unknown]
  - Implant site pain [Unknown]
  - Device placement issue [Recovered/Resolved]
  - Device breakage [Recovered/Resolved]
  - Device placement issue [Recovered/Resolved]

NARRATIVE: CASE EVENT DATE: 20220801
